FAERS Safety Report 6110368-6 (Version None)
Quarter: 2009Q1

REPORT INFORMATION
  Report Type: 
  Country: None (occurrence: None)
  Receive Date: 20090310
  Receipt Date: 20090226
  Transmission Date: 20090719
  Serious: Yes (Hospitalization)
  Sender: FDA-Public Use
  Company Number: ES-PFIZER INC-2006088246

PATIENT

DRUGS (5)
  1. SUNITINIB MALATE [Suspect]
     Indication: METASTATIC RENAL CELL CARCINOMA
     Dosage: 50 MG, 1X/DAY
     Route: 048
     Dates: start: 20060619, end: 20060703
  2. FORTECORTIN [Concomitant]
     Route: 048
  3. OMEPRAZOLE [Concomitant]
     Route: 048
  4. ORFIDAL [Concomitant]
     Route: 048
  5. TERMALGIN [Concomitant]
     Route: 048

REACTIONS (2)
  - ASTHENIA [None]
  - PETECHIAE [None]
